FAERS Safety Report 8582889-8 (Version None)
Quarter: 2012Q3

REPORT INFORMATION
  Report Type: 
  Country: None (occurrence: None)
  Receive Date: 20120809
  Receipt Date: 20120801
  Transmission Date: 20120928
  Serious: Yes (Hospitalization, Other)
  Sender: FDA-Public Use
  Company Number: DK-CELGENEUS-044-21880-12041691

PATIENT
  Sex: Female

DRUGS (6)
  1. ALKERAN [Concomitant]
     Route: 065
     Dates: start: 20080702, end: 20090301
  2. ALKERAN [Concomitant]
     Route: 065
     Dates: start: 20100901, end: 20110517
  3. REVLIMID [Suspect]
     Dosage: 10 MILLIGRAM
     Route: 048
     Dates: start: 20080702, end: 20090301
  4. PREDNISONE TAB [Concomitant]
     Route: 065
     Dates: start: 20080702, end: 20090301
  5. PREDNISONE TAB [Concomitant]
     Route: 065
     Dates: start: 20080702, end: 20110517
  6. REVLIMID [Suspect]
     Dosage: 10 MILLIGRAM
     Route: 048
     Dates: start: 20100901, end: 20110517

REACTIONS (2)
  - HAEMORRHAGE [None]
  - MYELODYSPLASTIC SYNDROME [None]
